FAERS Safety Report 4466331-4 (Version None)
Quarter: 2004Q4

REPORT INFORMATION
  Report Type: 
  Country: None (occurrence: None)
  Receive Date: 20041005
  Receipt Date: 20040901
  Transmission Date: 20050328
  Serious: Yes (Hospitalization)
  Sender: FDA-Public Use
  Company Number: NZ-GLAXOSMITHKLINE-B0344869A

PATIENT
  Age: 58 Year
  Sex: Male
  Weight: 88 kg

DRUGS (1)
  1. ZEFFIX [Suspect]
     Indication: HEPATITIS B
     Route: 048
     Dates: start: 20040315

REACTIONS (1)
  - THROMBOCYTOPENIA [None]
